FAERS Safety Report 16894945 (Version 1)
Quarter: 2019Q4

REPORT INFORMATION
  Report Type: Spontaneous
  Country: US (occurrence: US)
  Receive Date: 20190814
  Receipt Date: 20190814
  Transmission Date: 20200122
  Serious: Yes (Hospitalization)
  Sender: FDA-Public Use
  Company Number: None

PATIENT
  Age: 49 Year
  Sex: Female
  Weight: 58.4 kg

DRUGS (1)
  1. CISPLATIN (119875) [Suspect]
     Active Substance: CISPLATIN
     Indication: VOMITING
     Dates: start: 20190522, end: 20190703

REACTIONS (7)
  - Hypophagia [None]
  - Vomiting [None]
  - Nausea [None]
  - Weight decreased [None]
  - Cough [None]
  - Retching [None]
  - Odynophagia [None]

NARRATIVE: CASE EVENT DATE: 20190715
